FAERS Safety Report 8960187 (Version 1)
Quarter: 2012Q4

REPORT INFORMATION
  Report Type: 
  Country: NL (occurrence: NL)
  Receive Date: 20121212
  Receipt Date: 20121212
  Transmission Date: 20130627
  Serious: Yes (Other)
  Sender: FDA-Public Use
  Company Number: PHHY2012NL111863

PATIENT
  Age: 73 Year
  Sex: Male

DRUGS (4)
  1. ZOMETA [Suspect]
     Indication: RENAL CELL CARCINOMA
     Dosage: 4 mg/ 100 ml, once per 42 days
     Route: 042
  2. ZOMETA [Suspect]
     Dosage: 4 mg/ 100 ml, once per 42 days
     Route: 042
     Dates: start: 20110401
  3. ZOMETA [Suspect]
     Dosage: 4 mg/ 100 ml, once per 42 days
     Route: 042
     Dates: start: 20121022
  4. ZOMETA [Suspect]
     Dosage: 4 mg/ 100 ml, once per 42 days
     Route: 042
     Dates: start: 20121203

REACTIONS (2)
  - Thrombosis [Unknown]
  - Aphasia [Recovering/Resolving]
